FAERS Safety Report 5262172-9 (Version None)
Quarter: 2007Q1

REPORT INFORMATION
  Report Type: 
  Country: None (occurrence: None)
  Receive Date: 20070311
  Receipt Date: 20070228
  Transmission Date: 20070707
  Serious: Yes (Hospitalization)
  Sender: FDA-Public Use
  Company Number: 2006UW21403

PATIENT
  Age: 32 Year
  Sex: Female
  Weight: 84.5 kg

DRUGS (4)
  1. SEROQUEL [Suspect]
     Indication: BIPOLAR DISORDER
     Dosage: 25 - 200 MG
     Route: 048
     Dates: start: 20030101
  2. SEROQUEL [Suspect]
     Indication: DEPRESSION
     Dosage: 25 - 200 MG
     Route: 048
     Dates: start: 20030101
  3. SEROQUEL [Suspect]
     Indication: ANXIETY
     Dosage: 25 - 200 MG
     Route: 048
     Dates: start: 20030101
  4. RISPERDAL [Concomitant]
     Dates: start: 20030101

REACTIONS (4)
  - CARDIAC DISORDER [None]
  - DIABETES MELLITUS NON-INSULIN-DEPENDENT [None]
  - PNEUMONIA [None]
  - THYROID DISORDER [None]
